FAERS Safety Report 15266410 (Version 2)
Quarter: 2018Q3

REPORT INFORMATION
  Report Type: Spontaneous
  Country: GB (occurrence: GB)
  Receive Date: 20180810
  Receipt Date: 20180818
  Transmission Date: 20181010
  Serious: Yes (Hospitalization, Other)
  Sender: FDA-Public Use
  Company Number: GB-TEVA-823920ACC

PATIENT
  Age: 43 Year
  Sex: Female

DRUGS (2)
  1. PREDNISOLONE. [Suspect]
     Active Substance: PREDNISOLONE
     Indication: COLITIS ULCERATIVE
     Dates: start: 201209
  2. MESALAZINE [Suspect]
     Active Substance: MESALAMINE
     Indication: COLITIS ULCERATIVE
     Dosage: 3000 MILLIGRAM DAILY;
     Dates: start: 201107

REACTIONS (7)
  - Pain [Unknown]
  - Weight decreased [Unknown]
  - Fatigue [Unknown]
  - Depression [Unknown]
  - Condition aggravated [Unknown]
  - Constipation [Unknown]
  - Diarrhoea haemorrhagic [Unknown]

NARRATIVE: CASE EVENT DATE: 201209
